FAERS Safety Report 26144275 (Version 1)
Quarter: 2025Q4

REPORT INFORMATION
  Report Type: Spontaneous
  Country: US (occurrence: US)
  Receive Date: 20251211
  Receipt Date: 20251211
  Transmission Date: 20260118
  Serious: Yes (Hospitalization, Other)
  Sender: AUROBINDO
  Company Number: US-MLMSERVICE-20251121-PI723853-00312-1

PATIENT
  Age: 38 Year
  Sex: Male

DRUGS (1)
  1. TESTOSTERONE [Suspect]
     Active Substance: TESTOSTERONE
     Indication: Hypogonadism
     Dosage: UNK

REACTIONS (8)
  - Cerebral infarction [Recovered/Resolved]
  - Acute myocardial infarction [Recovered/Resolved]
  - Renal artery occlusion [Recovered/Resolved]
  - Cardiac ventricular thrombosis [Recovered/Resolved]
  - Gastrointestinal haemorrhage [Recovered/Resolved]
  - Infarction [Recovered/Resolved]
  - Polycythaemia [Recovered/Resolved]
  - Peripheral ischaemia [Recovered/Resolved]
